FAERS Safety Report 10874396 (Version 2)
Quarter: 2015Q1

REPORT INFORMATION
  Report Type: Spontaneous
  Country: US (occurrence: US)
  Receive Date: 20150227
  Receipt Date: 20150227
  Transmission Date: 20150721
  Serious: Yes (Hospitalization, Other)
  Sender: FDA-Public Use
  Company Number: US-JNJFOC-20150215747

PATIENT
  Age: 38 Year
  Sex: Male
  Weight: 76.66 kg

DRUGS (17)
  1. REMICADE [Suspect]
     Active Substance: INFLIXIMAB
     Indication: PRODUCT USED FOR UNKNOWN INDICATION
     Route: 042
  2. LOVENOX [Concomitant]
     Active Substance: ENOXAPARIN SODIUM
     Route: 065
  3. XANAX [Concomitant]
     Active Substance: ALPRAZOLAM
     Route: 048
  4. HUMIRA [Suspect]
     Active Substance: ADALIMUMAB
     Indication: PRODUCT USED FOR UNKNOWN INDICATION
     Route: 058
     Dates: start: 201303, end: 201312
  5. VICODIN [Concomitant]
     Active Substance: ACETAMINOPHEN\HYDROCODONE BITARTRATE
     Indication: PAIN
     Route: 065
  6. MESALAMINE. [Concomitant]
     Active Substance: MESALAMINE
     Route: 065
  7. DESYREL [Concomitant]
     Active Substance: TRAZODONE HYDROCHLORIDE
     Dosage: EVERY EVENING
     Route: 048
  8. ZOFRAN [Concomitant]
     Active Substance: ONDANSETRON HYDROCHLORIDE
     Route: 065
  9. DILAUDID [Concomitant]
     Active Substance: HYDROMORPHONE HYDROCHLORIDE
     Route: 065
  10. FLAGYL [Concomitant]
     Active Substance: METRONIDAZOLE\METRONIDAZOLE HYDROCHLORIDE
     Route: 065
  11. ACETAMINOPHEN. [Concomitant]
     Active Substance: ACETAMINOPHEN
     Route: 065
  12. CIPRO [Concomitant]
     Active Substance: CIPROFLOXACIN HYDROCHLORIDE
     Route: 065
  13. OXYCODONE [Concomitant]
     Active Substance: OXYCODONE
     Route: 065
  14. BENADRYL [Concomitant]
     Active Substance: DIPHENHYDRAMINE HYDROCHLORIDE
     Route: 065
  15. TORADOL [Concomitant]
     Active Substance: KETOROLAC TROMETHAMINE
     Route: 065
  16. NUBAIN [Concomitant]
     Active Substance: NALBUPHINE HYDROCHLORIDE
     Route: 065
  17. PANTOPRAZOLE [Concomitant]
     Active Substance: PANTOPRAZOLE SODIUM
     Route: 065

REACTIONS (27)
  - Abdominal mass [Unknown]
  - Inflammatory bowel disease [Unknown]
  - Diastasis recti abdominis [Unknown]
  - Gastritis [Unknown]
  - Bone disorder [Unknown]
  - Bowel movement irregularity [Unknown]
  - Pneumothorax [Unknown]
  - Lymphadenopathy [Unknown]
  - Stress [Unknown]
  - Nausea [Unknown]
  - Abdominal pain upper [Unknown]
  - Renal cyst [Unknown]
  - Blood urea decreased [Unknown]
  - Incisional hernia [Unknown]
  - Colectomy [Unknown]
  - Hepatic cyst [Unknown]
  - Drug intolerance [Unknown]
  - Lipase increased [Unknown]
  - Nephrolithiasis [Unknown]
  - Platelet count decreased [Unknown]
  - Blood glucose increased [Unknown]
  - Gastrointestinal disorder [Unknown]
  - Macrocytosis [Unknown]
  - Pleural fibrosis [Unknown]
  - Blood creatinine decreased [Unknown]
  - Blood calcium decreased [Unknown]
  - Diarrhoea [Unknown]

NARRATIVE: CASE EVENT DATE: 20130410
